FAERS Safety Report 4383606-8 (Version None)
Quarter: 2004Q2

REPORT INFORMATION
  Report Type: 
  Country: None (occurrence: None)
  Receive Date: 20040618
  Receipt Date: 20040527
  Transmission Date: 20050107
  Serious: Yes (Other)
  Sender: FDA-Public Use
  Company Number: USA040568792

PATIENT
  Age: 85 Year
  Sex: Female

DRUGS (7)
  1. EVISTA (RALOXIFENE HYDROCHLORIDE) [Suspect]
     Indication: OSTEOPOROSIS
     Dosage: 60 MG DAY
  2. FORTEO [Suspect]
     Indication: OSTEOPOROSIS
     Dates: start: 20040101
  3. FOSAMAX [Concomitant]
  4. LEVOXYL [Concomitant]
  5. MULTI-VITAMIN [Concomitant]
  6. CALCIUM [Concomitant]
  7. VITAMIN D [Concomitant]

REACTIONS (9)
  - BODY HEIGHT DECREASED [None]
  - CYANOSIS [None]
  - DIZZINESS [None]
  - DYSPHAGIA [None]
  - FOREIGN BODY TRAUMA [None]
  - IRRITABLE BOWEL SYNDROME [None]
  - MUSCULAR WEAKNESS [None]
  - PELVIC FRACTURE [None]
  - PHARMACEUTICAL PRODUCT COMPLAINT [None]
